FAERS Safety Report 15060957 (Version 1)
Quarter: 2018Q2

REPORT INFORMATION
  Report Type: Spontaneous
  Country: US (occurrence: US)
  Receive Date: 20180625
  Receipt Date: 20180625
  Transmission Date: 20180711
  Serious: No
  Sender: FDA-Public Use
  Company Number: US-ROCHE-2077500

PATIENT
  Sex: Female
  Weight: 65.83 kg

DRUGS (3)
  1. KLONOPIN [Suspect]
     Active Substance: CLONAZEPAM
     Indication: MOVEMENT DISORDER
  2. KLONOPIN [Suspect]
     Active Substance: CLONAZEPAM
     Indication: EPILEPSY
     Dosage: ONCE A NIGHT
     Route: 048
     Dates: start: 201801
  3. KLONOPIN [Suspect]
     Active Substance: CLONAZEPAM
     Indication: SOMNAMBULISM

REACTIONS (1)
  - Narcolepsy [Unknown]
